FAERS Safety Report 4558753-8 (Version None)
Quarter: 2005Q1

REPORT INFORMATION
  Report Type: 
  Country: None (occurrence: None)
  Receive Date: 20050121
  Receipt Date: 20050110
  Transmission Date: 20050727
  Serious: Yes (Hospitalization)
  Sender: FDA-Public Use
  Company Number: US-JNJFOC-20050102478

PATIENT
  Age: 5 Year
  Sex: Male

DRUGS (1)
  1. TOPAMAX [Suspect]
     Dosage: 35 MG IN AM, 45 MG IN PM
     Route: 049

REACTIONS (1)
  - RESPIRATORY DISTRESS [None]
